FAERS Safety Report 9030542 (Version 1)
Quarter: 2013Q1

REPORT INFORMATION
  Report Type: Spontaneous
  Country: BR (occurrence: BR)
  Receive Date: 20130122
  Receipt Date: 20130122
  Transmission Date: 20140127
  Serious: Yes (Death)
  Sender: FDA-Public Use
  Company Number: BR-PFIZER INC-2013022231

PATIENT
  Age: 85 Year
  Sex: Female

DRUGS (1)
  1. DETRUSITOL LA [Suspect]
     Dosage: UNK
     Dates: start: 20071001

REACTIONS (1)
  - Death [Fatal]
